FAERS Safety Report 10171803 (Version 1)
Quarter: 2014Q2

REPORT INFORMATION
  Report Type: Spontaneous
  Country: US (occurrence: None)
  Receive Date: 20140428
  Receipt Date: 20140428
  Transmission Date: 20141212
  Serious: Yes (Other)
  Sender: FDA-Public Use
  Company Number: PHEH2013US011634

PATIENT
  Age: 70 Year
  Sex: Female

DRUGS (1)
  1. LOTREL [Suspect]
     Dosage: 5-10 DAILY

REACTIONS (4)
  - Hypersensitivity [None]
  - Asthma [None]
  - Erythema [None]
  - Swelling [None]
